FAERS Safety Report 8877017 (Version 2)
Quarter: 2013Q2

REPORT INFORMATION
  Report Type: Spontaneous
  Country: US (occurrence: None)
  Receive Date: 20120426
  Receipt Date: 20120703
  Transmission Date: 20140414
  Serious: Yes (Other)
  Sender: FDA-Public Use
  Company Number: PHEH2012US002961

PATIENT
  Age: 34 Year
  Sex: Female

DRUGS (1)
  1. GILENYA [Suspect]
     Indication: MULTIPLE SCLEROSIS
     Route: 048
     Dates: start: 20120105

REACTIONS (9)
  - Heart rate decreased [None]
  - Dizziness [None]
  - Visual impairment [None]
  - Vision blurred [None]
  - Weight increased [None]
  - Pain in extremity [None]
  - Photophobia [None]
  - Heart rate irregular [None]
  - Feeling abnormal [None]
